FAERS Safety Report 5528529-3 (Version None)
Quarter: 2007Q4

REPORT INFORMATION
  Report Type: 
  Country: None (occurrence: None)
  Receive Date: 20071121
  Receipt Date: 20071109
  Transmission Date: 20080405
  Serious: Yes (Other)
  Sender: FDA-Public Use
  Company Number: 2007S1011373

PATIENT
  Age: 73 Year
  Sex: Female

DRUGS (5)
  1. MINAX (METOPROLOL TARTRATE) (50 MG) [Suspect]
     Indication: BLOOD PRESSURE
     Dosage: 50 MG; TWICE A DAY; ORAL
     Route: 048
     Dates: start: 20071026
  2. ZANIDIP [Concomitant]
  3. ATACAND [Concomitant]
  4. ACIMAX [Concomitant]
  5. ASPIRIN BP [Concomitant]

REACTIONS (1)
  - BLOOD PRESSURE INCREASED [None]
